FAERS Safety Report 13706916 (Version 2)
Quarter: 2017Q4

REPORT INFORMATION
  Report Type: Report from Study
  Country: GB (occurrence: GB)
  Receive Date: 20170630
  Receipt Date: 20171112
  Transmission Date: 20180320
  Serious: Yes (Other)
  Sender: FDA-Public Use
  Company Number: GB-TEVA-780610ACC

PATIENT
  Sex: Female

DRUGS (1)
  1. COPAXONE [Suspect]
     Active Substance: GLATIRAMER ACETATE
     Dosage: UNKNOWN FORM STRENGTH
     Route: 065

REACTIONS (7)
  - Dyspnoea [Unknown]
  - Seizure [Unknown]
  - Panic attack [Unknown]
  - Feeling cold [Unknown]
  - Chills [Unknown]
  - Myocardial infarction [Unknown]
  - Epilepsy [Unknown]
